FAERS Safety Report 18689361 (Version 2)
Quarter: 2021Q1

REPORT INFORMATION
  Report Type: Report from Study
  Country: CA (occurrence: CA)
  Receive Date: 20201231
  Receipt Date: 20210106
  Transmission Date: 20210419
  Serious: Yes (Other)
  Sender: FDA-Public Use
  Company Number: CA-JNJFOC-20201247213

PATIENT
  Age: 25 Year
  Sex: Female

DRUGS (1)
  1. STELARA [Suspect]
     Active Substance: USTEKINUMAB
     Indication: CROHN^S DISEASE
     Dosage: ON 23?DEC?2020, THE PATIENT RECEIVED 33RD STELARA INJECTION
     Route: 058
     Dates: start: 20171108

REACTIONS (8)
  - Decreased appetite [Not Recovered/Not Resolved]
  - Inappropriate schedule of product administration [Unknown]
  - Haematochezia [Not Recovered/Not Resolved]
  - Abdominal pain [Not Recovered/Not Resolved]
  - Abdominal distension [Not Recovered/Not Resolved]
  - Diarrhoea [Not Recovered/Not Resolved]
  - General physical health deterioration [Unknown]
  - COVID-19 [Unknown]

NARRATIVE: CASE EVENT DATE: 20201125
